FAERS Safety Report 11153313 (Version 1)
Quarter: 2015Q2

REPORT INFORMATION
  Report Type: Report from Study
  Country: BR (occurrence: BR)
  Receive Date: 20150601
  Receipt Date: 20150601
  Transmission Date: 20150821
  Serious: Yes (Other)
  Sender: FDA-Public Use
  Company Number: ALCN2015BR003451

PATIENT
  Sex: Female

DRUGS (1)
  1. VITALUX PLUS [Suspect]
     Active Substance: VITAMINS
     Dosage: 1 DF, QD
     Route: 048
     Dates: start: 2010

REACTIONS (1)
  - Cataract [Unknown]
